FAERS Safety Report 21293287 (Version 1)
Quarter: 2022Q3

REPORT INFORMATION
  Report Type: Spontaneous
  Country: US (occurrence: None)
  Receive Date: 20220905
  Receipt Date: 20220905
  Transmission Date: 20221027
  Serious: No
  Sender: FDA-Public Use
  Company Number: US-Encube-000203

PATIENT
  Age: 73 Year
  Sex: Female

DRUGS (16)
  1. DICLOFENAC SODIUM [Suspect]
     Active Substance: DICLOFENAC SODIUM
     Indication: Arthritis
     Dosage: ROUTE OF ADMINISTRATION: TOPICAL
     Dates: start: 20220818, end: 202208
  2. INSULIN NOS [Concomitant]
     Active Substance: INSULIN NOS
  3. METFORMIN [Concomitant]
     Active Substance: METFORMIN HYDROCHLORIDE
  4. LOSARTAN POTASSIUM [Concomitant]
     Active Substance: LOSARTAN POTASSIUM
  5. ASPIRIN [Concomitant]
     Active Substance: ASPIRIN
  6. TRESIBA [Concomitant]
     Active Substance: INSULIN DEGLUDEC
  7. CLAVIX [Concomitant]
  8. CARVEDILOL [Concomitant]
     Active Substance: CARVEDILOL
  9. ROSUVASTATIN [Concomitant]
     Active Substance: ROSUVASTATIN
  10. AMITRIPTYLINE [Concomitant]
     Active Substance: AMITRIPTYLINE
  11. MECLIZINE [Concomitant]
     Active Substance: MECLIZINE HYDROCHLORIDE
  12. CEPHALEXIN [Concomitant]
     Active Substance: CEPHALEXIN
  13. POTASSIUM [Concomitant]
     Active Substance: POTASSIUM
  14. Fabex [Concomitant]
  15. HYDROCHLOROTHIAZIDE\TRIAMTERENE [Concomitant]
     Active Substance: HYDROCHLOROTHIAZIDE\TRIAMTERENE
  16. SYMBICORT [Concomitant]
     Active Substance: BUDESONIDE\FORMOTEROL FUMARATE DIHYDRATE
     Dosage: INHALER

REACTIONS (5)
  - Peripheral swelling [Not Recovered/Not Resolved]
  - Blood pressure increased [Recovering/Resolving]
  - Cardiac disorder [Recovering/Resolving]
  - Ear discomfort [Recovering/Resolving]
  - Off label use [Unknown]

NARRATIVE: CASE EVENT DATE: 20220818
